FAERS Safety Report 4485400-6 (Version None)
Quarter: 2004Q4

REPORT INFORMATION
  Report Type: 
  Country: None (occurrence: None)
  Receive Date: 20041025
  Receipt Date: 20041025
  Transmission Date: 20050328
  Serious: Yes (Other)
  Sender: FDA-Public Use
  Company Number: None

PATIENT
  Sex: Female
  Weight: 79.3795 kg

DRUGS (2)
  1. VIOXX [Suspect]
     Indication: ARTHRITIS
     Dosage: 25 MG DAILY ORAL
     Route: 048
     Dates: start: 20001210, end: 20041020
  2. VIOXX [Suspect]
     Indication: TENDONITIS
     Dosage: 25 MG DAILY ORAL
     Route: 048
     Dates: start: 20001210, end: 20041020

REACTIONS (2)
  - CHEST PAIN [None]
  - DYSPNOEA [None]
